FAERS Safety Report 6698263-5 (Version None)
Quarter: 2010Q2

REPORT INFORMATION
  Report Type: 
  Country: None (occurrence: None)
  Receive Date: 20100427
  Receipt Date: 20100414
  Transmission Date: 20101027
  Serious: Yes (Death, Life-Threatening, Disabling)
  Sender: FDA-Public Use
  Company Number: JP-BAYER-200913532BYL

PATIENT
  Age: 75 Year
  Sex: Male
  Weight: 67 kg

DRUGS (10)
  1. NEXAVAR [Suspect]
     Indication: HEPATIC NEOPLASM MALIGNANT
     Dosage: TOTAL DAILY DOSE: 800 MG  UNIT DOSE: 200 MG
     Route: 048
     Dates: start: 20090731, end: 20090810
  2. NEXAVAR [Suspect]
     Dosage: TOTAL DAILY DOSE: 400 MG  UNIT DOSE: 200 MG
     Route: 048
     Dates: start: 20090907, end: 20090920
  3. NEXAVAR [Suspect]
     Dosage: UNIT DOSE: 200 MG
     Route: 048
     Dates: start: 20090810, end: 20090906
  4. URSO 250 [Concomitant]
     Dosage: UNIT DOSE: 100 MG
     Route: 048
  5. ADALAT CC [Concomitant]
     Dosage: SINCE BEFORE ADMINISTRATION
     Route: 048
  6. TAMSULOSIN HCL [Concomitant]
     Dosage: UNIT DOSE: 0.2 MG
     Route: 048
  7. KETOPROFEN [Concomitant]
     Dosage: SINCE BEFORE ADMINISTRATION
     Route: 061
  8. MEDICON [Concomitant]
     Dosage: UNIT DOSE: 15 MG
     Route: 048
     Dates: start: 20090824
  9. MUCOSOLVAN [Concomitant]
     Dosage: UNIT DOSE: 15 MG
     Route: 048
     Dates: start: 20090824
  10. FAMOTIDINE [Concomitant]
     Route: 048
     Dates: start: 20091002

REACTIONS (6)
  - ASCITES [None]
  - DIARRHOEA [None]
  - HEPATIC FUNCTION ABNORMAL [None]
  - HEPATIC NEOPLASM MALIGNANT [None]
  - MALIGNANT NEOPLASM PROGRESSION [None]
  - OESOPHAGEAL VARICES HAEMORRHAGE [None]
